FAERS Safety Report 11877630 (Version 2)
Quarter: 2016Q1

REPORT INFORMATION
  Report Type: Report from Study
  Country: US (occurrence: US)
  Receive Date: 20151230
  Receipt Date: 20160201
  Transmission Date: 20160526
  Serious: Yes (Other)
  Sender: FDA-Public Use
  Company Number: US-MYLANLABS-2015M1046512

PATIENT

DRUGS (9)
  1. METOPROLOL. [Concomitant]
     Active Substance: METOPROLOL
     Dosage: 50 MG, AM
     Route: 048
  2. CLOZAPINE. [Suspect]
     Active Substance: CLOZAPINE
     Dosage: 600 UNK, HS
  3. ONDANSETRON ODT DRLA [Concomitant]
     Dosage: 8 MG, Q8 PRN
     Route: 048
  4. LEVOTHYROXINE. [Concomitant]
     Active Substance: LEVOTHYROXINE
     Dosage: 0.075 ?G, AM
     Route: 048
  5. RISPERDAL [Concomitant]
     Active Substance: RISPERIDONE
     Dosage: 2 MG, AM
     Route: 048
  6. CLONAZEPAM. [Concomitant]
     Active Substance: CLONAZEPAM
     Dosage: 1 MG, HS
     Route: 048
  7. CLONAZEPAM. [Concomitant]
     Active Substance: CLONAZEPAM
     Dosage: 0.5 MG, AM
     Route: 048
  8. RISPERDAL [Concomitant]
     Active Substance: RISPERIDONE
     Dosage: 1 MG, HS
     Route: 048
  9. MORPHINE SULFATE. [Concomitant]
     Active Substance: MORPHINE SULFATE
     Dosage: 8 MG, TID BEFORE MEALS AND QHS
     Route: 048

REACTIONS (1)
  - Laryngeal cancer stage 0 [Not Recovered/Not Resolved]
